FAERS Safety Report 6867049-0 (Version None)
Quarter: 2010Q2

REPORT INFORMATION
  Report Type: 
  Country: None (occurrence: None)
  Receive Date: 20100610
  Receipt Date: 20100127
  Transmission Date: 20101027
  Serious: No
  Sender: FDA-Public Use
  Company Number: 2010SP006606

PATIENT
  Age: 57 Year
  Sex: Female

DRUGS (9)
  1. SAPHRIS [Suspect]
     Indication: DRUG USE FOR UNKNOWN INDICATION
     Dosage: 15 MG;HS;SL
     Route: 060
     Dates: start: 20091031, end: 20091205
  2. BUSPAR [Concomitant]
  3. CYTOMEL [Concomitant]
  4. TOPAMAX [Concomitant]
  5. ZOLFOT [Concomitant]
  6. LOVAZA [Concomitant]
  7. METFORMIN [Concomitant]
  8. ADIPEX [Concomitant]
  9. NORTRIPTYLINE [Concomitant]

REACTIONS (2)
  - HYPOAESTHESIA ORAL [None]
  - PARAESTHESIA ORAL [None]
